FAERS Safety Report 7433046-X (Version None)
Quarter: 2011Q2

REPORT INFORMATION
  Report Type: 
  Country: None (occurrence: None)
  Receive Date: 20110422
  Receipt Date: 20110419
  Transmission Date: 20111010
  Serious: Yes (Hospitalization)
  Sender: FDA-Public Use
  Company Number: IT-MERCK-1104ITA00045

PATIENT
  Age: 56 Year
  Sex: Female

DRUGS (3)
  1. COZAAR [Suspect]
     Indication: HYPERTENSION
     Route: 048
     Dates: start: 20110403
  2. NUTRITIONAL SUPPLEMENTS [Suspect]
     Indication: ASTHENIA
     Route: 048
     Dates: start: 20110401, end: 20110410
  3. FLURBIPROFEN [Suspect]
     Indication: OROPHARYNGEAL PAIN
     Route: 048
     Dates: start: 20110404, end: 20110407

REACTIONS (4)
  - TONGUE OEDEMA [None]
  - SUFFOCATION FEELING [None]
  - ODYNOPHAGIA [None]
  - RASH [None]
